FAERS Safety Report 13416900 (Version 1)
Quarter: 2017Q2

REPORT INFORMATION
  Report Type: Spontaneous
  Country: VE (occurrence: VE)
  Receive Date: 20170407
  Receipt Date: 20170407
  Transmission Date: 20170830
  Serious: Yes (Other)
  Sender: FDA-Public Use
  Company Number: VE-INCYTE CORPORATION-2017IN002674

PATIENT
  Sex: Male

DRUGS (1)
  1. JAKAVI [Suspect]
     Active Substance: RUXOLITINIB
     Indication: MYELOFIBROSIS
     Route: 065

REACTIONS (8)
  - Embolism [Unknown]
  - Splenomegaly [Unknown]
  - Pancytopenia [Unknown]
  - White blood cell count increased [Unknown]
  - Gastrointestinal haemorrhage [Unknown]
  - Cardiac disorder [Unknown]
  - Cachexia [Unknown]
  - Renal injury [Unknown]
